FAERS Safety Report 22342759 (Version 1)
Quarter: 2023Q2

REPORT INFORMATION
  Report Type: Spontaneous
  Country: ES (occurrence: ES)
  Receive Date: 20230519
  Receipt Date: 20230519
  Transmission Date: 20230722
  Serious: Yes (Other)
  Sender: FDA-Public Use
  Company Number: ES-SA-SAC20230501000863

PATIENT
  Age: 41 Year
  Sex: Female

DRUGS (2)
  1. DUPIXENT [Suspect]
     Active Substance: DUPILUMAB
     Dosage: UNK
  2. BILASTINE [Concomitant]
     Active Substance: BILASTINE
     Dosage: 1 TABLET OF 10 MG/24H TO EVERY 12/H

REACTIONS (15)
  - Pelvic inflammatory disease [Unknown]
  - Injection site urticaria [Unknown]
  - Injection site discolouration [Unknown]
  - Dysphonia [Unknown]
  - Malaise [Unknown]
  - Papule [Unknown]
  - Pruritus [Unknown]
  - Flushing [Unknown]
  - Rash maculo-papular [Unknown]
  - Eosinophil count abnormal [Unknown]
  - Urticaria [Unknown]
  - Hypertension [Unknown]
  - Endometriosis [Unknown]
  - Androgenetic alopecia [Unknown]
  - Salpingectomy [Unknown]
